FAERS Safety Report 5010180-5 (Version None)
Quarter: 2006Q2

REPORT INFORMATION
  Report Type: 
  Country: None (occurrence: None)
  Receive Date: 20060404
  Receipt Date: 20051108
  Transmission Date: 20061013
  Serious: Yes (Other)
  Sender: FDA-Public Use
  Company Number: US200511000269

PATIENT
  Age: 97 Year
  Sex: Female

DRUGS (8)
  1. CYMBALTA [Suspect]
     Dosage: 60 MG
  2. DEMADEX [Concomitant]
  3. PLAVIX [Concomitant]
  4. FLORINEF [Concomitant]
  5. IMDUR [Concomitant]
  6. VASOTEC [Concomitant]
  7. NEURONTIN [Concomitant]
  8. FLONASE [Concomitant]

REACTIONS (1)
  - HYPONATRAEMIA [None]
